FAERS Safety Report 5021741-1 (Version None)
Quarter: 2006Q2

REPORT INFORMATION
  Report Type: 
  Country: None (occurrence: None)
  Receive Date: 20060605
  Receipt Date: 20060523
  Transmission Date: 20061013
  Serious: Yes (Other)
  Sender: FDA-Public Use
  Company Number: 225492

PATIENT
  Age: 80 Year
  Sex: Male

DRUGS (1)
  1. RITUXAN [Suspect]
     Indication: NEOPLASM MALIGNANT
     Dates: start: 20060401

REACTIONS (6)
  - ABDOMINAL PAIN UPPER [None]
  - ANOREXIA [None]
  - DIZZINESS [None]
  - DRY MOUTH [None]
  - FATIGUE [None]
  - NEOPLASM [None]
